FAERS Safety Report 17236001 (Version 3)
Quarter: 2023Q1

REPORT INFORMATION
  Report Type: Spontaneous
  Country: DE (occurrence: DE)
  Receive Date: 20200106
  Receipt Date: 20230228
  Transmission Date: 20230418
  Serious: Yes (Other)
  Sender: FDA-Public Use
  Company Number: None

PATIENT
  Age: 60 Year
  Sex: Male

DRUGS (2)
  1. DOCETAXEL [Suspect]
     Active Substance: DOCETAXEL
     Indication: Product used for unknown indication
     Route: 065
     Dates: start: 20170814, end: 20180619
  2. NINTEDANIB [Suspect]
     Active Substance: NINTEDANIB
     Indication: Non-small cell lung cancer
     Route: 065
     Dates: start: 20170814, end: 20180619

REACTIONS (6)
  - Dyspnoea [Unknown]
  - Malignant neoplasm progression [Unknown]
  - Dermatitis [Unknown]
  - Chronic obstructive pulmonary disease [Unknown]
  - Pruritus [Unknown]
  - Non-small cell lung cancer [Unknown]

NARRATIVE: CASE EVENT DATE: 20180703
